FAERS Safety Report 16649318 (Version 1)
Quarter: 2019Q3

REPORT INFORMATION
  Report Type: Report from Study
  Country: US (occurrence: US)
  Receive Date: 20190730
  Receipt Date: 20190730
  Transmission Date: 20191004
  Serious: Yes (Other)
  Sender: FDA-Public Use
  Company Number: US-PFIZER INC-2019324714

PATIENT

DRUGS (5)
  1. FLUOROURACIL. [Suspect]
     Active Substance: FLUOROURACIL
     Indication: COLORECTAL CANCER METASTATIC
     Dosage: UNK, CYCLIC (EVERY 2 WK AS PER STANDARD PROTOCOL)
  2. REOLYSIN [Suspect]
     Active Substance: PELAREOREP
     Indication: COLORECTAL CANCER METASTATIC
     Dosage: UNK, CYCLIC (1X10^10 TCID50 TO 3X10^10 TCID50, OVER 1 HOUR ON DAYS 1-5 EVERY 4 WEEKS))
     Route: 042
  3. BEVACIZUMAB. [Suspect]
     Active Substance: BEVACIZUMAB
     Indication: COLORECTAL CANCER METASTATIC
     Dosage: UNK, CYCLIC (EVERY 2 WK AS PER STANDARD PROTOCOL)
  4. IRINOTECAN HCL [Suspect]
     Active Substance: IRINOTECAN HYDROCHLORIDE
     Indication: COLORECTAL CANCER METASTATIC
     Dosage: 180 MG/M2, CYCLIC (HIGHEST DOSE, EVERY 2 WK AS PER STANDARD PROTOCOL)
  5. CALCIUM FOLINATE [Suspect]
     Active Substance: LEUCOVORIN CALCIUM
     Indication: COLORECTAL CANCER METASTATIC
     Dosage: UNK, CYCLIC (EVERY 2 WK AS PER STANDARD PROTOCOL)

REACTIONS (2)
  - Urosepsis [Unknown]
  - Febrile neutropenia [Unknown]
